FAERS Safety Report 6215608-0 (Version None)
Quarter: 2009Q2

REPORT INFORMATION
  Report Type: 
  Country: None (occurrence: None)
  Receive Date: 20090603
  Receipt Date: 20090603
  Transmission Date: 20091009
  Serious: Yes (Other)
  Sender: FDA-Public Use
  Company Number: None

PATIENT
  Sex: Female
  Weight: 122.9248 kg

DRUGS (2)
  1. PRED FORTE [Suspect]
     Indication: CATARACT OPERATION
     Dosage: 1 DROP 4 TIMES DAILY R EYE
     Dates: start: 20090408, end: 20090413
  2. ZYMAR [Suspect]
     Indication: CATARACT OPERATION
     Dosage: 1 DROP 4 TIMES DAILY R EYE
     Dates: start: 20090408, end: 20090427

REACTIONS (1)
  - COUGH [None]
